FAERS Safety Report 8372814-7 (Version None)
Quarter: 2012Q2

REPORT INFORMATION
  Report Type: 
  Country: None (occurrence: None)
  Receive Date: 20120521
  Receipt Date: 20120507
  Transmission Date: 20120825
  Serious: Yes (Life-Threatening)
  Sender: FDA-Public Use
  Company Number: CN-MYLANLABS-2012S1009759

PATIENT
  Age: 42 Year
  Sex: Female

DRUGS (5)
  1. ISOSORBIDE DINITRATE [Concomitant]
     Dosage: 10 MG/DAU
     Route: 065
  2. ADENOSINE [Suspect]
     Indication: CARDIAC STRESS TEST
     Dosage: 140 MICROG/KG/MIN INFUSION OVER 6 MINUTES
     Route: 065
  3. NIFEDIPINE [Suspect]
     Dosage: 10 MG/DAY
     Route: 065
  4. TECHNETIUM (99M TC) SESTAMIBI [Concomitant]
     Indication: SCAN MYOCARDIAL PERFUSION
     Route: 065
  5. ASPIRIN [Concomitant]
     Dosage: 100 MG/DAY
     Route: 065

REACTIONS (5)
  - CARDIAC ARREST [None]
  - TACHYPNOEA [None]
  - ARTERIOSPASM CORONARY [None]
  - CONVULSION [None]
  - LOSS OF CONSCIOUSNESS [None]
